FAERS Safety Report 17210360 (Version 1)
Quarter: 2019Q4

REPORT INFORMATION
  Report Type: Spontaneous
  Country: FI (occurrence: FI)
  Receive Date: 20191227
  Receipt Date: 20191227
  Transmission Date: 20200122
  Serious: Yes (Other)
  Sender: FDA-Public Use
  Company Number: FI-SA-2019SA355115

PATIENT
  Age: 77 Year
  Sex: Female

DRUGS (1)
  1. KLEXANE [Suspect]
     Active Substance: ENOXAPARIN
     Indication: POSTOPERATIVE CARE
     Dosage: 1 DF, QD
     Route: 065
     Dates: start: 20191217

REACTIONS (2)
  - Dyspnoea [Unknown]
  - Arrhythmia [Unknown]
